FAERS Safety Report 9028276 (Version 1)
Quarter: 2013Q1

REPORT INFORMATION
  Report Type: Spontaneous
  Country: US (occurrence: US)
  Receive Date: 20130124
  Receipt Date: 20130124
  Transmission Date: 20140127
  Serious: No
  Sender: FDA-Public Use
  Company Number: US-PFIZER INC-2013028207

PATIENT
  Age: 76 Year
  Sex: Male
  Weight: 65.31 kg

DRUGS (2)
  1. LIPITOR [Suspect]
     Indication: BLOOD CHOLESTEROL INCREASED
     Dosage: 10 MG, DAILY
     Dates: start: 20130106, end: 20130120
  2. LATANOPROST [Concomitant]
     Indication: INTRAOCULAR PRESSURE INCREASED
     Dosage: UNK

REACTIONS (5)
  - Eye oedema [Recovering/Resolving]
  - Rash [Recovering/Resolving]
  - Eye disorder [Recovering/Resolving]
  - Ocular hyperaemia [Recovering/Resolving]
  - Eye pruritus [Recovering/Resolving]
